FAERS Safety Report 13170409 (Version 1)
Quarter: 2017Q1

REPORT INFORMATION
  Report Type: Spontaneous
  Country: CH (occurrence: CH)
  Receive Date: 20170201
  Receipt Date: 20170201
  Transmission Date: 20170428
  Serious: Yes (Death)
  Sender: FDA-Public Use
  Company Number: CH-009507513-1701CHE011385

PATIENT
  Age: 77 Year
  Sex: Male
  Weight: 65 kg

DRUGS (15)
  1. CANCIDAS [Suspect]
     Active Substance: CASPOFUNGIN ACETATE
     Indication: INFECTIVE ANEURYSM
     Dosage: 50 MG, QD (ONE HOUR OF INFUSION WITH CANCIDAS 50 MG IN 100 ML NACL 0.9%)
     Route: 042
     Dates: start: 20161115, end: 20170107
  2. MAGNESIOCARD [Concomitant]
     Active Substance: MAGNESIUM ASPARTATE HYDROCHLORIDE
     Indication: HYPOMAGNESAEMIA
     Dosage: 2.5 MMOL, BID
     Route: 048
  3. TORSEMIDE. [Concomitant]
     Active Substance: TORSEMIDE
     Indication: CARDIAC FAILURE
     Dosage: 10 MG, TID
     Route: 048
  4. VANCOCIN [Suspect]
     Active Substance: VANCOMYCIN HYDROCHLORIDE
     Indication: SYSTEMIC INFECTION
     Dosage: 500 MG, QD
     Route: 042
     Dates: start: 20161201, end: 20170107
  5. ASPIRIN CARDIO [Concomitant]
     Active Substance: ASPIRIN
     Indication: CORONARY ARTERY DISEASE
     Dosage: 100 MG, QD
     Route: 048
  6. ALLOPURINOL. [Concomitant]
     Active Substance: ALLOPURINOL
     Indication: GOUT
     Dosage: 100 MG, QD
     Route: 048
  7. NEO-MERCAZOLE [Concomitant]
     Active Substance: CARBIMAZOLE
     Indication: HYPERTHYROIDISM
     Dosage: 5 MG, TID
     Route: 048
  8. ATORVASTATIN CALCIUM. [Concomitant]
     Active Substance: ATORVASTATIN CALCIUM
     Indication: CORONARY ARTERY DISEASE
     Dosage: 20 MG, QD
     Route: 048
  9. PIPERACILLIN AND TAZOBACTAM [Suspect]
     Active Substance: PIPERACILLIN SODIUM\TAZOBACTAM SODIUM
     Indication: SYSTEMIC INFECTION
     Dosage: 4.5 G, QD (AS PERMANENT INFUSION WITH INFUSION PUMP. PREPARED BY PHARMACY)
     Route: 042
     Dates: start: 20161116, end: 20170107
  10. CALCIUM ACETATE. [Concomitant]
     Active Substance: CALCIUM ACETATE
     Indication: HYPOPHOSPHATAEMIA
     Dosage: 400 MG, BID
     Route: 048
  11. WILD VI DE 3 [Concomitant]
     Indication: VITAMIN SUPPLEMENTATION
     Dosage: 8 GTT, QD
     Route: 048
  12. PANTOPRAZOLE MEPHA [Concomitant]
     Active Substance: PANTOPRAZOLE SODIUM
     Dosage: 40 MG, QD
     Route: 048
  13. HYDROCORTISONE. [Concomitant]
     Active Substance: HYDROCORTISONE
     Indication: GLUCOCORTICOID DEFICIENCY
     Dosage: 10 MG, UNK
     Route: 048
  14. SERALIN MEPHA [Suspect]
     Active Substance: SERTRALINE HYDROCHLORIDE
     Indication: ADJUSTMENT DISORDER WITH DEPRESSED MOOD
     Dosage: 50 MG, UNK
     Route: 048
  15. IMODIUM [Concomitant]
     Active Substance: LOPERAMIDE HYDROCHLORIDE
     Indication: DIARRHOEA
     Dosage: DOSAGE AS REQUIRED
     Route: 048

REACTIONS (1)
  - Ventricular fibrillation [Fatal]

NARRATIVE: CASE EVENT DATE: 20170107
